FAERS Safety Report 13037394 (Version 4)
Quarter: 2017Q2

REPORT INFORMATION
  Report Type: Spontaneous
  Country: US (occurrence: US)
  Receive Date: 20161216
  Receipt Date: 20170516
  Transmission Date: 20170830
  Serious: Yes (Hospitalization, Other)
  Sender: FDA-Public Use
  Company Number: US-TEVA-720064USA

PATIENT
  Age: 80 Year
  Sex: Female
  Weight: 75.88 kg

DRUGS (21)
  1. XARELTO [Concomitant]
     Active Substance: RIVAROXABAN
     Indication: DEEP VEIN THROMBOSIS
     Dosage: 15 MILLIGRAM DAILY;
     Dates: start: 20170324
  2. XARELTO [Concomitant]
     Active Substance: RIVAROXABAN
     Indication: CEREBRAL INFARCTION
  3. ATORVASTATIN [Concomitant]
     Active Substance: ATORVASTATIN
     Indication: HYPERLIPIDAEMIA
     Dosage: 1 TABLET AT BEDTIME
     Route: 048
     Dates: start: 20170323
  4. SYNTHROID [Concomitant]
     Active Substance: LEVOTHYROXINE SODIUM
     Indication: HYPOTHYROIDISM
     Dosage: 100 MICROGRAM DAILY;
     Route: 048
     Dates: start: 20170324
  5. AMLODIPINE BESILATE [Concomitant]
     Active Substance: AMLODIPINE BESYLATE
     Indication: HYPERTENSION
     Dosage: 1.5 TABLET ONCE A DAY
     Route: 048
     Dates: start: 20170414
  6. CYANOCOBALAMIN. [Concomitant]
     Active Substance: CYANOCOBALAMIN
     Dosage: 500 MILLIGRAM DAILY;
     Route: 048
     Dates: start: 20170323
  7. CLONIDINE. [Suspect]
     Active Substance: CLONIDINE
     Indication: HYPERTENSION
     Dosage: ONE PER WEEK
     Route: 062
     Dates: start: 20161006, end: 20161006
  8. SENNA-S [Concomitant]
     Active Substance: DOCUSATE SODIUM\SENNOSIDES
     Indication: FAECES SOFT
     Dosage: BEDTIME, 8.6-50 MG
     Route: 048
     Dates: start: 20170323
  9. ASPIRIN. [Concomitant]
     Active Substance: ASPIRIN
     Indication: ROUTINE HEALTH MAINTENANCE
     Dosage: 81 MILLIGRAM DAILY;
  10. DAILY MULTIPLE VITAMINS/IRON [Concomitant]
     Indication: VITAMIN B12 DEFICIENCY
     Route: 048
  11. LOSARTAN POTASSIUM. [Concomitant]
     Active Substance: LOSARTAN POTASSIUM
     Indication: HYPERTENSION
     Dosage: 100 MILLIGRAM DAILY;
     Route: 048
  12. VITAMIN D [Concomitant]
     Active Substance: CHOLECALCIFEROL
     Indication: OSTEOARTHRITIS
     Dosage: 7142.8571 IU (INTERNATIONAL UNIT) DAILY; ON MONDAYS
     Route: 048
     Dates: start: 20170327
  13. LYRICA [Concomitant]
     Active Substance: PREGABALIN
     Indication: OSTEOARTHRITIS
     Dosage: 1 CAPSULE AT BEDTIME
     Route: 048
     Dates: start: 20170323
  14. METOPROLOL. [Concomitant]
     Active Substance: METOPROLOL
     Indication: ESSENTIAL HYPERTENSION
     Dosage: 100 MILLIGRAM DAILY;
     Route: 048
     Dates: start: 20170327
  15. OXYBUTYNIN [Concomitant]
     Active Substance: OXYBUTYNIN
     Dosage: 5 MILLIGRAM DAILY;
     Route: 048
     Dates: start: 20170401
  16. CATAPRES [Concomitant]
     Active Substance: CLONIDINE HYDROCHLORIDE
     Indication: HYPERTENSION
     Dosage: .3 MILLIGRAM DAILY;
     Route: 048
  17. CHLORTHALIDONE. [Concomitant]
     Active Substance: CHLORTHALIDONE
     Indication: HYPERTENSION
     Dosage: 25 MILLIGRAM DAILY;
     Route: 048
  18. ACETAMINOPHEN. [Concomitant]
     Active Substance: ACETAMINOPHEN
     Indication: PAIN
     Dosage: EVERY 6 HOURS AS NEEDED
     Route: 048
     Dates: start: 20170406
  19. CITALOPRAM [Concomitant]
     Active Substance: CITALOPRAM HYDROBROMIDE
     Indication: MAJOR DEPRESSION
     Dosage: 20 MILLIGRAM DAILY;
     Route: 048
     Dates: start: 20170324
  20. LISINOPRIL. [Concomitant]
     Active Substance: LISINOPRIL
     Indication: ESSENTIAL HYPERTENSION
     Dosage: 40 MILLIGRAM DAILY;
     Route: 048
     Dates: start: 20170323
  21. METFORMIN HCL [Concomitant]
     Active Substance: METFORMIN HYDROCHLORIDE
     Indication: TYPE 2 DIABETES MELLITUS
     Dosage: 1000 MILLIGRAM DAILY;
     Route: 048
     Dates: start: 20170323

REACTIONS (7)
  - Adverse reaction [Unknown]
  - Loss of consciousness [Unknown]
  - Ecchymosis [Not Recovered/Not Resolved]
  - Mass [Unknown]
  - Head injury [Unknown]
  - Fall [Unknown]
  - Contusion [Not Recovered/Not Resolved]

NARRATIVE: CASE EVENT DATE: 20161006
